FAERS Safety Report 19888895 (Version 1)
Quarter: 2021Q3

REPORT INFORMATION
  Report Type: Other
  Country: US (occurrence: US)
  Receive Date: 20210927
  Receipt Date: 20210927
  Transmission Date: 20211014
  Serious: Yes (Other)
  Sender: FDA-Public Use
  Company Number: US-ROCHE-2912099

PATIENT
  Sex: Female

DRUGS (1)
  1. ROZLYTREK [Suspect]
     Active Substance: ENTRECTINIB
     Indication: NEOPLASM MALIGNANT
     Dosage: TAKE 3 CAPSULE(S) BY MOUTH EVERY DAY
     Route: 048

REACTIONS (3)
  - Oral disorder [Unknown]
  - Bone pain [Unknown]
  - Osteomyelitis [Unknown]
